FAERS Safety Report 8504035-9 (Version None)
Quarter: 2012Q3

REPORT INFORMATION
  Report Type: 
  Country: None (occurrence: None)
  Receive Date: 20120711
  Receipt Date: 20120705
  Transmission Date: 20120928
  Serious: Yes (Life-Threatening, Hospitalization)
  Sender: FDA-Public Use
  Company Number: JP-ELI_LILLY_AND_COMPANY-JP201205009325

PATIENT
  Sex: Male
  Weight: 65 kg

DRUGS (6)
  1. DILTIAZEM HCL [Concomitant]
     Indication: HYPERTENSION
     Dosage: 100 MG, UNK
     Route: 048
     Dates: start: 20070201, end: 20120523
  2. VERAPAMIL [Concomitant]
     Indication: HYPERTENSION
     Dosage: UNK
     Route: 048
     Dates: start: 20110901, end: 20120523
  3. BISOPROLOL FUMARATE [Concomitant]
     Dosage: 25 MG, UNK
     Route: 048
     Dates: end: 20120523
  4. VASOLAN                            /00014302/ [Concomitant]
     Dosage: UNK
     Route: 048
     Dates: end: 20120523
  5. GEMZAR [Suspect]
     Indication: BILE DUCT CANCER STAGE III
     Dosage: 1200 MG, OTHER
     Route: 042
     Dates: start: 20120417, end: 20120522
  6. BISOPROLOL FUMARATE [Concomitant]
     Dosage: UNK
     Route: 048
     Dates: start: 20120528

REACTIONS (3)
  - ATRIOVENTRICULAR BLOCK [None]
  - ATRIAL FIBRILLATION [None]
  - BRADYCARDIA [None]
